FAERS Safety Report 4531116-7 (Version None)
Quarter: 2004Q4

REPORT INFORMATION
  Report Type: 
  Country: None (occurrence: None)
  Receive Date: 20041215
  Receipt Date: 20041207
  Transmission Date: 20050328
  Serious: Yes (Disabling)
  Sender: FDA-Public Use
  Company Number: A044-002-005357

PATIENT
  Age: 78 Year
  Sex: Female

DRUGS (5)
  1. ARICEPT [Suspect]
     Indication: DEMENTIA ALZHEIMER'S TYPE
     Dosage: 5 MG, 1 IN 1 D, ORAL
     Route: 048
     Dates: start: 20041105, end: 20041112
  2. VENLAFAXINE HCL [Concomitant]
  3. DIAZEPAM [Concomitant]
  4. CO-COMADOL (PANADEINE CO) [Concomitant]
  5. PEPTAC (PEPTAC) [Concomitant]

REACTIONS (1)
  - PSYCHOTIC DISORDER [None]
